FAERS Safety Report 6959496-3 (Version None)
Quarter: 2010Q3

REPORT INFORMATION
  Report Type: 
  Country: None (occurrence: None)
  Receive Date: 20100827
  Receipt Date: 20100812
  Transmission Date: 20110219
  Serious: Yes (Disabling)
  Sender: FDA-Public Use
  Company Number: 2010P1000948

PATIENT
  Sex: Male

DRUGS (3)
  1. FENTANYL [Suspect]
     Dosage: TDER
     Route: 062
  2. CON MEDS [Concomitant]
  3. PREV MEDS [Concomitant]

REACTIONS (8)
  - ACTIVITIES OF DAILY LIVING IMPAIRED [None]
  - ASTHENIA [None]
  - BLOOD PRESSURE ABNORMAL [None]
  - BLOOD PRESSURE FLUCTUATION [None]
  - CARDIAC DISORDER [None]
  - DYSPNOEA [None]
  - MULTIPLE INJURIES [None]
  - PAIN [None]
